FAERS Safety Report 8849269 (Version 1)
Quarter: 2012Q4

REPORT INFORMATION
  Report Type: Spontaneous
  Country: US (occurrence: None)
  Receive Date: 20121018
  Receipt Date: 20121018
  Transmission Date: 20130627
  Serious: No
  Sender: FDA-Public Use
  Company Number: None

PATIENT
  Sex: Male

DRUGS (3)
  1. PEGINTRON [Suspect]
     Indication: HEPATITIS C
     Dates: start: 201206, end: 20121017
  2. RIBAVIRIN [Suspect]
     Indication: HEPATITIS C
     Dosage: 1 po am, 2 po pm
     Route: 048
     Dates: start: 201206, end: 20121017
  3. VICTRELIS [Suspect]
     Indication: HEPATITIS C
     Route: 048
     Dates: start: 201206, end: 20121017

REACTIONS (1)
  - Treatment failure [None]
